FAERS Safety Report 13425915 (Version 1)
Quarter: 2017Q2

REPORT INFORMATION
  Report Type: Spontaneous
  Country: US (occurrence: US)
  Receive Date: 20170410
  Receipt Date: 20170410
  Transmission Date: 20170830
  Serious: No
  Sender: FDA-Public Use
  Company Number: None

PATIENT
  Age: 72 Year
  Sex: Male
  Weight: 88.3 kg

DRUGS (2)
  1. IVIG [Suspect]
     Active Substance: HUMAN IMMUNOGLOBULIN G
     Indication: IMMUNOGLOBULINS DECREASED
     Route: 041
     Dates: start: 20170221
  2. IVIG [Suspect]
     Active Substance: HUMAN IMMUNOGLOBULIN G
     Indication: PNEUMONIA
     Route: 041
     Dates: start: 20170221

REACTIONS (5)
  - Coombs test positive [None]
  - Haemolysis [None]
  - Anaemia [None]
  - Blood lactate dehydrogenase increased [None]
  - Pneumonia [None]

NARRATIVE: CASE EVENT DATE: 20170221
